FAERS Safety Report 4403765-8 (Version None)
Quarter: 2004Q3

REPORT INFORMATION
  Report Type: 
  Country: None (occurrence: None)
  Receive Date: 20040719
  Receipt Date: 20040706
  Transmission Date: 20050211
  Serious: Yes (Other)
  Sender: FDA-Public Use
  Company Number: S04-USA-02164-01

PATIENT
  Age: 49 Year
  Sex: Female

DRUGS (4)
  1. LEXAPRO [Suspect]
     Indication: DEPRESSION
     Dosage: 10 MG QD PO
     Route: 048
     Dates: start: 20040101, end: 20040101
  2. LEXAPRO [Suspect]
     Indication: DEPRESSION
     Dosage: 5 MG QD PO
     Route: 048
     Dates: start: 20040101, end: 20040101
  3. LEXAPRO [Suspect]
     Indication: DEPRESSION
     Dosage: 5 MG QD PO
     Route: 048
     Dates: start: 20040215, end: 20040101
  4. COSAMIN DS [Concomitant]

REACTIONS (7)
  - CATARACT [None]
  - EYE HAEMORRHAGE [None]
  - EYE PAIN [None]
  - RETINAL DISORDER [None]
  - SOMNOLENCE [None]
  - VASODILATATION [None]
  - VISUAL DISTURBANCE [None]
